FAERS Safety Report 8617300-1 (Version None)
Quarter: 2012Q3

REPORT INFORMATION
  Report Type: 
  Country: None (occurrence: None)
  Receive Date: 20120823
  Receipt Date: 20120814
  Transmission Date: 20120928
  Serious: Yes (Hospitalization, Other)
  Sender: FDA-Public Use
  Company Number: US-ASTRAZENECA-2011SE54480

PATIENT
  Age: 54 Year
  Sex: Female
  Weight: 67.6 kg

DRUGS (35)
  1. SEROQUEL XR [Suspect]
     Indication: TRANSIENT ISCHAEMIC ATTACK
     Route: 048
     Dates: start: 20020101
  2. SEROQUEL XR [Suspect]
     Route: 048
  3. CHEMOTHERAPY [Suspect]
     Route: 065
     Dates: start: 19930101
  4. FLUTICASONE TROPIONATE [Concomitant]
     Indication: MULTIPLE ALLERGIES
     Route: 045
  5. SEROQUEL XR [Suspect]
     Indication: BIPOLAR DISORDER
     Route: 048
     Dates: start: 20020101
  6. SEROQUEL XR [Suspect]
     Route: 048
  7. SEROQUEL XR [Suspect]
     Route: 048
  8. SEROQUEL XR [Suspect]
     Route: 048
  9. SEROQUEL XR [Suspect]
     Route: 048
  10. CHEMOTHERAPY [Suspect]
     Route: 065
     Dates: start: 20000101
  11. 18 DIFFERENT PILLS [Concomitant]
  12. HYDROCHLOROTHIAZIDE [Concomitant]
     Indication: BLOOD PRESSURE
     Route: 048
  13. SEROQUEL XR [Suspect]
     Indication: ANXIETY
     Route: 048
     Dates: start: 20020101
  14. SEROQUEL XR [Suspect]
     Indication: DEPRESSION
     Route: 048
     Dates: start: 20020101
  15. SEROQUEL XR [Suspect]
     Route: 048
  16. CHEMOTHERAPY [Suspect]
     Route: 065
     Dates: start: 19960101
  17. RADIATION [Suspect]
     Route: 065
     Dates: start: 19930101
  18. RADIATION [Suspect]
     Route: 065
     Dates: start: 19990101
  19. RADIATION [Suspect]
     Route: 065
     Dates: start: 19870101
  20. RADIATION [Suspect]
     Route: 065
     Dates: start: 19950101
  21. VALIUM [Concomitant]
     Route: 048
  22. SEROQUEL XR [Suspect]
     Route: 048
  23. SEROQUEL XR [Suspect]
     Route: 048
  24. CIPROFLOXACIN [Concomitant]
     Route: 042
  25. POTASSIUM [Concomitant]
     Indication: BLOOD PRESSURE
     Route: 048
  26. SEROQUEL XR [Suspect]
     Indication: SCHIZOPHRENIA
     Route: 048
     Dates: start: 20020101
  27. CHEMOTHERAPY [Suspect]
     Route: 065
     Dates: start: 19870101
  28. CHEMOTHERAPY [Suspect]
     Route: 065
     Dates: start: 19950101
  29. CHEMOTHERAPY [Suspect]
     Route: 065
     Dates: start: 19990101
  30. GABAPENTIN [Concomitant]
     Route: 048
  31. VENTOLIN [Concomitant]
     Indication: ASTHMA
     Route: 055
  32. SEROQUEL XR [Suspect]
     Route: 048
  33. SEROQUEL XR [Suspect]
     Route: 048
  34. RADIATION [Suspect]
     Route: 065
     Dates: start: 19960101
  35. RADIATION [Suspect]
     Route: 065
     Dates: start: 20000101

REACTIONS (38)
  - OEDEMA PERIPHERAL [None]
  - INFECTION [None]
  - CROHN'S DISEASE [None]
  - ABDOMINAL DISCOMFORT [None]
  - DIZZINESS [None]
  - DEAFNESS UNILATERAL [None]
  - CANCER IN REMISSION [None]
  - CONVULSION [None]
  - HYPOACUSIS [None]
  - STAPHYLOCOCCAL INFECTION [None]
  - MOUTH HAEMORRHAGE [None]
  - SWELLING FACE [None]
  - OFF LABEL USE [None]
  - INTENTIONAL DRUG MISUSE [None]
  - ANOSMIA [None]
  - AMNESIA [None]
  - FALL [None]
  - BIPOLAR DISORDER [None]
  - VISUAL IMPAIRMENT [None]
  - AGEUSIA [None]
  - AGITATION [None]
  - HALLUCINATION, VISUAL [None]
  - HAEMATEMESIS [None]
  - ABDOMINAL PAIN UPPER [None]
  - CERVIX CARCINOMA STAGE IV [None]
  - SWELLING [None]
  - LIVER TENDERNESS [None]
  - MALAISE [None]
  - NEOPLASM MALIGNANT [None]
  - MYOCARDIAL INFARCTION [None]
  - RADIATION INJURY [None]
  - DIARRHOEA [None]
  - HEADACHE [None]
  - VOMITING [None]
  - HEPATIC INFECTION [None]
  - SCHIZOPHRENIA [None]
  - IMMUNODEFICIENCY [None]
  - DYSPNOEA [None]
